FAERS Safety Report 16016755 (Version 5)
Quarter: 2019Q2

REPORT INFORMATION
  Report Type: Report from Study
  Country: KR (occurrence: KR)
  Receive Date: 20190228
  Receipt Date: 20190501
  Transmission Date: 20190711
  Serious: Yes (Hospitalization)
  Sender: FDA-Public Use
  Company Number: KR-SA-2019SA047184

PATIENT
  Age: 60 Year
  Sex: Male

DRUGS (9)
  1. APIDRA [Suspect]
     Active Substance: INSULIN GLULISINE
     Dosage: 18-18-14 UNITS, TID
     Route: 058
     Dates: start: 201902, end: 201903
  2. INSULIN GLARGINE [Suspect]
     Active Substance: INSULIN GLARGINE
     Dosage: 24 U, QD
     Route: 058
     Dates: start: 20190215, end: 201902
  3. APIDRA [Suspect]
     Active Substance: INSULIN GLULISINE
     Indication: DIABETES MELLITUS
     Dosage: 14-14-10 UNITS, TID
     Route: 058
     Dates: start: 20190215, end: 201902
  4. INSULIN GLARGINE [Suspect]
     Active Substance: INSULIN GLARGINE
     Dosage: 40 U, QD
     Route: 058
     Dates: start: 201903, end: 201903
  5. INSULIN GLARGINE [Suspect]
     Active Substance: INSULIN GLARGINE
     Indication: DIABETES MELLITUS
     Dosage: 14 U, QD
     Route: 058
     Dates: start: 20190209, end: 20190214
  6. INSULIN GLARGINE [Suspect]
     Active Substance: INSULIN GLARGINE
     Dosage: 32 U, QD
     Route: 058
     Dates: start: 201903
  7. INSULIN GLARGINE [Suspect]
     Active Substance: INSULIN GLARGINE
     Dosage: 28 U, QD
     Route: 058
     Dates: start: 201902, end: 201903
  8. APIDRA [Suspect]
     Active Substance: INSULIN GLULISINE
     Dosage: UNK, TID/ 30-26-26 UNITS
     Route: 058
     Dates: start: 201903, end: 201903
  9. APIDRA [Suspect]
     Active Substance: INSULIN GLULISINE
     Dosage: 22-22- 18 UNITS ,TID
     Route: 058
     Dates: start: 201903

REACTIONS (4)
  - Hyperglycaemia [Recovered/Resolved]
  - Product use issue [Unknown]
  - Blood glucose fluctuation [Unknown]
  - Glaucoma [Recovered/Resolved]

NARRATIVE: CASE EVENT DATE: 201902
